FAERS Safety Report 4553874-8 (Version None)
Quarter: 2005Q1

REPORT INFORMATION
  Report Type: 
  Country: None (occurrence: None)
  Receive Date: 20050113
  Receipt Date: 20050113
  Transmission Date: 20050727
  Serious: Yes (Death)
  Sender: FDA-Public Use
  Company Number: None

PATIENT
  Age: 76 Year
  Sex: Male
  Weight: 75.2971 kg

DRUGS (6)
  1. NAMENDA [Suspect]
     Indication: DEMENTIA ALZHEIMER'S TYPE
     Dosage: 10 MG BID PO/ UNTIL DEATH
     Route: 048
     Dates: start: 20040101
  2. ARICEPT [Concomitant]
  3. TRAZODONE HCL [Concomitant]
  4. SEROQUEL [Concomitant]
  5. FLUTAMIDE [Concomitant]
  6. GLIPIZIDE [Concomitant]

REACTIONS (1)
  - WEIGHT DECREASED [None]
